FAERS Safety Report 8625048-2 (Version None)
Quarter: 2012Q3

REPORT INFORMATION
  Report Type: 
  Country: None (occurrence: None)
  Receive Date: 20120827
  Receipt Date: 20070625
  Transmission Date: 20120928
  Serious: No
  Sender: FDA-Public Use
  Company Number: US-009507513-0706USA04645

PATIENT

DRUGS (1)
  1. VYTORIN [Suspect]
     Dosage: 10-40
     Route: 048

REACTIONS (4)
  - ARTHRALGIA [None]
  - INAPPROPRIATE SCHEDULE OF DRUG ADMINISTRATION [None]
  - BLOOD PRESSURE INCREASED [None]
  - JOINT INSTABILITY [None]
